FAERS Safety Report 18542049 (Version 2)
Quarter: 2020Q4

REPORT INFORMATION
  Report Type: Report from Study
  Country: US (occurrence: US)
  Receive Date: 20201124
  Receipt Date: 20201207
  Transmission Date: 20210114
  Serious: No
  Sender: FDA-Public Use
  Company Number: US-JNJFOC-20201136864

PATIENT
  Age: 35 Year
  Sex: Female
  Weight: 71.73 kg

DRUGS (11)
  1. VIIBRYD [Concomitant]
     Active Substance: VILAZODONE HYDROCHLORIDE
     Indication: DEPRESSION
     Dosage: HALF OF 40MG TABLET
  2. SPRAVATO [Suspect]
     Active Substance: ESKETAMINE
     Dosage: 56 MG, TOTAL DOSES: 5
     Dates: start: 20201014, end: 20201110
  3. LAMICTAL [Suspect]
     Active Substance: LAMOTRIGINE
     Dosage: IN THE EVENING ALONG WITH 200MG IN THE AM TO TOTAL  300MG IN A DAY
     Route: 048
     Dates: start: 20201110, end: 202011
  4. LAMICTAL [Suspect]
     Active Substance: LAMOTRIGINE
     Indication: MAJOR DEPRESSION
     Dosage: IN THE AM
     Route: 048
     Dates: end: 202011
  5. L-THEANINE [Concomitant]
     Active Substance: DIETARY SUPPLEMENT
     Indication: ANXIETY
  6. LAMICTAL [Suspect]
     Active Substance: LAMOTRIGINE
     Dosage: IN AM
     Route: 048
     Dates: start: 20201119
  7. GUANFACINE. [Concomitant]
     Active Substance: GUANFACINE
     Indication: POST-TRAUMATIC STRESS DISORDER
     Dosage: EVERY EVENING
  8. SPRAVATO [Suspect]
     Active Substance: ESKETAMINE
     Indication: DEPRESSION
     Dosage: 56 MG, TOTAL 2 DOSES
     Dates: start: 20200928, end: 20201005
  9. SPRAVATO [Suspect]
     Active Substance: ESKETAMINE
     Dosage: 84 MG, TOTAL 1 DOSE
     Dates: start: 20201012, end: 20201012
  10. ZOFRAN [Concomitant]
     Active Substance: ONDANSETRON HYDROCHLORIDE
     Indication: NAUSEA
  11. SPRAVATO [Suspect]
     Active Substance: ESKETAMINE
     Dosage: 56 MG, TOTAL 1 DOSE
     Dates: start: 20201116, end: 20201116

REACTIONS (3)
  - Tremor [Recovered/Resolved]
  - Anxiety [Recovered/Resolved]
  - Dissociation [Recovered/Resolved]

NARRATIVE: CASE EVENT DATE: 20201111
